FAERS Safety Report 11364086 (Version 1)
Quarter: 2015Q3

REPORT INFORMATION
  Report Type: Spontaneous
  Country: US (occurrence: None)
  Receive Date: 20150810
  Receipt Date: 20150810
  Transmission Date: 20151125
  Serious: No
  Sender: FDA-Public Use
  Company Number: None

PATIENT
  Age: 50 Year
  Sex: Male
  Weight: 86.18 kg

DRUGS (2)
  1. CHLORASEPTIC SORE THROAT [Suspect]
     Active Substance: PHENOL
     Indication: OROPHARYNGEAL PAIN
     Route: 048
     Dates: start: 20150730, end: 20150731
  2. DEXILANT [Concomitant]
     Active Substance: DEXLANSOPRAZOLE

REACTIONS (3)
  - Oral discomfort [None]
  - Lip swelling [None]
  - Temperature intolerance [None]

NARRATIVE: CASE EVENT DATE: 20150731
